FAERS Safety Report 7950318 (Version 4)
Quarter: 2014Q2

REPORT INFORMATION
  Report Type: Report from Study
  Country: US (occurrence: US)
  Receive Date: 20110518
  Receipt Date: 20131017
  Transmission Date: 20141212
  Serious: Yes (Hospitalization, Other)
  Sender: FDA-Public Use
  Company Number: US-PFIZER INC-2011103684

PATIENT
  Age: 54 Year
  Sex: Female
  Weight: 89.8 kg

DRUGS (16)
  1. LYRICA [Suspect]
     Indication: CONVULSION
     Dosage: UNK
     Route: 048
     Dates: start: 1999
  2. LYRICA [Suspect]
     Dosage: 150 MG IN MORNING; 225 MG IN EVENING
     Route: 048
  3. LYRICA [Suspect]
     Dosage: 75 MG, 2X/DAY
     Route: 048
  4. DILANTIN [Suspect]
     Indication: CONVULSION
     Dosage: 100 MG, 5X/DAILY
     Route: 048
     Dates: start: 1999
  5. DILANTIN [Suspect]
     Dosage: 200 MG IN MORNING AND 300 MG IN EVENING
     Route: 048
  6. DILANTIN [Suspect]
     Dosage: 200 MG IN MORNING AND 200 MG IN EVENING
     Route: 048
  7. DILANTIN [Suspect]
     Dosage: UNK
     Route: 048
  8. LAMICTAL [Suspect]
     Indication: CONVULSION
     Dosage: 100 MG, UNK
     Route: 048
  9. LAMICTAL [Suspect]
     Dosage: 200 MG, 2X/DAY
     Route: 048
  10. LAMICTAL [Suspect]
     Dosage: ONE TABLET IN MORNING AND ONE AND HALF TABLET IN EVENING, 2X/DAY
     Route: 048
  11. LAMICTAL [Suspect]
     Dosage: UNK
     Route: 048
  12. PHENOBARBITAL [Suspect]
     Indication: CONVULSION
     Dosage: UNK
  13. LEVOTHYROXINE [Concomitant]
     Dosage: 100 UG, DAILY
  14. LISINOPRIL [Concomitant]
     Dosage: UNK, DAILY
  15. PRAVASTATIN [Concomitant]
     Dosage: 200 MG, DAILY
  16. AMLODIPINE [Concomitant]
     Dosage: UNK, DAILY

REACTIONS (7)
  - Cardiac arrest [Unknown]
  - Myocardial infarction [Unknown]
  - Lower limb fracture [Unknown]
  - Hemiparesis [Unknown]
  - Balance disorder [Unknown]
  - Joint swelling [Not Recovered/Not Resolved]
  - Fall [Unknown]
